FAERS Safety Report 8391142-7 (Version None)
Quarter: 2012Q2

REPORT INFORMATION
  Report Type: 
  Country: None (occurrence: None)
  Receive Date: 20120529
  Receipt Date: 20120515
  Transmission Date: 20120825
  Serious: Yes (Other)
  Sender: FDA-Public Use
  Company Number: US-ELI_LILLY_AND_COMPANY-US201205007748

PATIENT
  Age: 13 Year
  Sex: Female
  Weight: 79.365 kg

DRUGS (4)
  1. STRATTERA [Suspect]
     Dosage: 80 MG, UNK
  2. ADDERALL 5 [Concomitant]
     Indication: ATTENTION DEFICIT/HYPERACTIVITY DISORDER
     Dosage: 25 MG, UNK
  3. ADDERALL 5 [Concomitant]
     Dosage: 55 MG, UNK
  4. ADDERALL 5 [Concomitant]
     Dosage: 35 MG, UNK

REACTIONS (2)
  - ASPARTATE AMINOTRANSFERASE INCREASED [None]
  - ALANINE AMINOTRANSFERASE INCREASED [None]
